FAERS Safety Report 5016031-7 (Version None)
Quarter: 2006Q2

REPORT INFORMATION
  Report Type: 
  Country: None (occurrence: None)
  Receive Date: 20060414
  Receipt Date: 20060314
  Transmission Date: 20061013
  Serious: No
  Sender: FDA-Public Use
  Company Number: 2006SP001222

PATIENT
  Age: 74 Year
  Sex: Female
  Weight: 54.4316 kg

DRUGS (6)
  1. LUNESTA [Suspect]
     Indication: INSOMNIA
     Dosage: 2 MG; HS; ORAL
     Route: 048
     Dates: start: 20060304
  2. PROPAFENONE HCL [Concomitant]
  3. COREG [Concomitant]
  4. SYNTHROID [Concomitant]
  5. WARFARIN SODIUM [Concomitant]
  6. AMBIEN [Concomitant]

REACTIONS (1)
  - HYPERHIDROSIS [None]
